FAERS Safety Report 4317416-4 (Version None)
Quarter: 2004Q1

REPORT INFORMATION
  Report Type: 
  Country: None (occurrence: None)
  Receive Date: 20040312
  Receipt Date: 20040302
  Transmission Date: 20041129
  Serious: Yes (Hospitalization)
  Sender: FDA-Public Use
  Company Number: NL-JNJFOC-20040300724

PATIENT
  Age: 58 Year
  Sex: Male

DRUGS (6)
  1. REMICADE [Suspect]
     Indication: ANKYLOSING SPONDYLITIS
     Dosage: INTRAVENOUS
     Dates: start: 20030814, end: 20030814
  2. ATENOLOL [Concomitant]
  3. ZESTRIL [Concomitant]
  4. NORVASC [Concomitant]
  5. HYDROCHLOROTHIAZIDE [Concomitant]
  6. ISONIAZID [Concomitant]

REACTIONS (6)
  - COUGH [None]
  - DRUG EFFECT DECREASED [None]
  - DYSPNOEA [None]
  - FUNCTIONAL RESIDUAL CAPACITY DECREASED [None]
  - TOTAL LUNG CAPACITY DECREASED [None]
  - VITAL CAPACITY DECREASED [None]
